FAERS Safety Report 9647073 (Version 2)
Quarter: 2015Q2

REPORT INFORMATION
  Report Type: Spontaneous
  Country: US (occurrence: US)
  Receive Date: 20131027
  Receipt Date: 20150420
  Transmission Date: 20150821
  Serious: No
  Sender: FDA-Public Use
  Company Number: US-PURDUE-USA-2013-0104571

PATIENT
  Age: 60 Year
  Sex: Female

DRUGS (6)
  1. OXYCONTIN [Suspect]
     Active Substance: OXYCODONE HYDROCHLORIDE
     Indication: PAIN
     Dosage: 40 MG, Q4H
     Route: 048
     Dates: start: 2005
  2. COREG [Concomitant]
     Active Substance: CARVEDILOL
     Indication: BLOOD PRESSURE
     Dosage: 1 TABLET, DAILY
     Route: 048
  3. AVAPRO [Concomitant]
     Active Substance: IRBESARTAN
     Indication: BLOOD PRESSURE
     Dosage: 300 MG, DAILY
     Route: 048
  4. AMBIEN [Concomitant]
     Active Substance: ZOLPIDEM TARTRATE
     Indication: SLEEP APNOEA SYNDROME
     Dosage: 1 TABLET, PRN
     Route: 048
  5. OXYCODONE HCL IR CAPSULES [Concomitant]
     Active Substance: OXYCODONE HYDROCHLORIDE
     Indication: BREAKTHROUGH PAIN
     Dosage: 30 MG, PRN
     Route: 048
     Dates: start: 2005
  6. XANAX [Concomitant]
     Active Substance: ALPRAZOLAM
     Indication: ANXIETY
     Dosage: 1 MG, PRN
     Route: 048

REACTIONS (5)
  - Product taste abnormal [Unknown]
  - Abdominal discomfort [Unknown]
  - Abdominal distension [Unknown]
  - Drug ineffective [Unknown]
  - Inadequate analgesia [Unknown]

NARRATIVE: CASE EVENT DATE: 201305
